FAERS Safety Report 8319119-8 (Version None)
Quarter: 2012Q2

REPORT INFORMATION
  Report Type: 
  Country: None (occurrence: None)
  Receive Date: 20120427
  Receipt Date: 20120420
  Transmission Date: 20120825
  Serious: Yes (Hospitalization, Disabling)
  Sender: FDA-Public Use
  Company Number: AU-MERCK-1204USA02880

PATIENT
  Age: 85 Year
  Sex: Female
  Weight: 64 kg

DRUGS (2)
  1. ZOCOR [Suspect]
     Route: 048
     Dates: end: 20120101
  2. ZOCOR [Suspect]
     Indication: METABOLIC DISORDER
     Route: 048
     Dates: start: 20120109, end: 20120206

REACTIONS (2)
  - MYALGIA [None]
  - ACUTE CORONARY SYNDROME [None]
